FAERS Safety Report 5341787-3 (Version None)
Quarter: 2007Q2

REPORT INFORMATION
  Report Type: 
  Country: None (occurrence: None)
  Receive Date: 20070601
  Receipt Date: 20070518
  Transmission Date: 20071010
  Serious: Yes (Hospitalization)
  Sender: FDA-Public Use
  Company Number: US-ELI_LILLY_AND_COMPANY-US200705006092

PATIENT
  Age: 82 Year
  Sex: Female

DRUGS (5)
  1. HUMALOG MIX 50/50 [Suspect]
     Dosage: 18 U, EACH MORNING
     Dates: start: 20060101
  2. HUMALOG MIX 50/50 [Suspect]
     Dosage: 13 U, EACH EVENING
     Dates: start: 20060101
  3. HUMALOG [Suspect]
  4. HUMULIN R [Suspect]
  5. LANTUS [Concomitant]

REACTIONS (12)
  - ANGER [None]
  - BLOOD GLUCOSE DECREASED [None]
  - BLOOD GLUCOSE INCREASED [None]
  - DIZZINESS [None]
  - EXTRASYSTOLES [None]
  - FALL [None]
  - FATIGUE [None]
  - FEELING ABNORMAL [None]
  - INJECTION SITE BRUISING [None]
  - IRRITABILITY [None]
  - MALAISE [None]
  - NERVOUSNESS [None]
